FAERS Safety Report 15557818 (Version 1)
Quarter: 2018Q4

REPORT INFORMATION
  Report Type: Spontaneous
  Country: US (occurrence: US)
  Receive Date: 20181027
  Receipt Date: 20181027
  Transmission Date: 20190205
  Serious: No
  Sender: FDA-Public Use
  Company Number: US-JNJFOC-20181005170

PATIENT
  Age: 5 Month
  Sex: Male
  Weight: 6.71 kg

DRUGS (2)
  1. TYLENOL [Suspect]
     Active Substance: ACETAMINOPHEN
     Indication: HAND-FOOT-AND-MOUTH DISEASE
     Dosage: ACCIDENTALLY GAVE HIM 2.5 ML FOR HIS SECOND DOES AN HOUR EARLY
     Route: 048
  2. TYLENOL [Suspect]
     Active Substance: ACETAMINOPHEN
     Indication: HAND-FOOT-AND-MOUTH DISEASE
     Route: 048

REACTIONS (3)
  - Off label use [Unknown]
  - Product use in unapproved indication [Unknown]
  - Extra dose administered [Unknown]
